FAERS Safety Report 17052093 (Version 1)
Quarter: 2019Q4

REPORT INFORMATION
  Report Type: Spontaneous
  Country: US (occurrence: US)
  Receive Date: 20191119
  Receipt Date: 20191119
  Transmission Date: 20200122
  Serious: Yes (Other)
  Sender: FDA-Public Use
  Company Number: None

PATIENT
  Age: 37 Year
  Sex: Female
  Weight: 90.72 kg

DRUGS (2)
  1. CENTRUM WOMEN [Concomitant]
     Active Substance: VITAMINS
  2. PARAGARD T 380A [Suspect]
     Active Substance: COPPER
     Dates: start: 20190515

REACTIONS (6)
  - Treatment failure [None]
  - Maternal exposure during pregnancy [None]
  - Device dislocation [None]
  - Road traffic accident [None]
  - Foetal exposure during pregnancy [None]
  - Maternal exposure before pregnancy [None]
